FAERS Safety Report 16046886 (Version 2)
Quarter: 2019Q1

REPORT INFORMATION
  Report Type: Spontaneous
  Country: US (occurrence: US)
  Receive Date: 20190307
  Receipt Date: 20190325
  Transmission Date: 20190418
  Serious: No
  Sender: FDA-Public Use
  Company Number: US-PFIZER INC-2019097468

PATIENT
  Age: 68 Year
  Sex: Male

DRUGS (1)
  1. XELJANZ XR [Suspect]
     Active Substance: TOFACITINIB CITRATE
     Dosage: 11 MG, 1X/DAY (AT 7PM AND AT 9PM WHEN HE IAYS DOWN AT NIGHT)

REACTIONS (6)
  - Gastric disorder [Recovered/Resolved]
  - Cough [Recovered/Resolved]
  - Product use issue [Unknown]
  - Pollakiuria [Unknown]
  - Dry mouth [Unknown]
  - Headache [Recovered/Resolved]
